FAERS Safety Report 6191133-0 (Version None)
Quarter: 2009Q2

REPORT INFORMATION
  Report Type: 
  Country: None (occurrence: None)
  Receive Date: 20090515
  Receipt Date: 20090511
  Transmission Date: 20091009
  Serious: Yes (Death)
  Sender: FDA-Public Use
  Company Number: PHHO2009AT05917

PATIENT
  Sex: Female
  Weight: 57 kg

DRUGS (1)
  1. ERL 080A ERL+TAB [Suspect]
     Indication: OBLITERATIVE BRONCHIOLITIS

REACTIONS (1)
  - DEATH [None]
